FAERS Safety Report 20544297 (Version 1)
Quarter: 2022Q1

REPORT INFORMATION
  Report Type: Spontaneous
  Country: US (occurrence: US)
  Receive Date: 20220303
  Receipt Date: 20220303
  Transmission Date: 20220423
  Serious: Yes (Other)
  Sender: FDA-Public Use
  Company Number: US-MLMSERVICE-20220216-3378231-1

PATIENT
  Age: 60 Year
  Sex: Female

DRUGS (2)
  1. TAMOXIFEN [Suspect]
     Active Substance: TAMOXIFEN
     Indication: Endometrial cancer
     Dosage: UNK
     Route: 065
  2. PACLITAXEL [Suspect]
     Active Substance: PACLITAXEL
     Indication: Endometrial cancer
     Dosage: UNK, 2 CYCLE
     Route: 065

REACTIONS (2)
  - Lipoedema [Not Recovered/Not Resolved]
  - Diffuse alopecia [Not Recovered/Not Resolved]
